FAERS Safety Report 4340382-2 (Version None)
Quarter: 2004Q2

REPORT INFORMATION
  Report Type: 
  Country: None (occurrence: None)
  Receive Date: 20040414
  Receipt Date: 20040402
  Transmission Date: 20050107
  Serious: Yes (Death)
  Sender: FDA-Public Use
  Company Number: DSA_70238_2004

PATIENT
  Age: 6 Month
  Sex: Female
  Weight: 0.565 kg

DRUGS (22)
  1. AQUASOL A [Suspect]
     Dosage: 5000 U 3XWK, IM
     Route: 030
     Dates: start: 20031020, end: 20031111
  2. TPN WITH BAXTER MULTIVITAMINS [Suspect]
     Dates: start: 20031020, end: 20031126
  3. VITAMIN K TAB [Suspect]
     Dates: start: 20031020, end: 20031020
  4. AMPICILLIN [Suspect]
     Dates: start: 20031020, end: 20031026
  5. GENTAMICIN [Suspect]
     Dates: start: 20031020, end: 20031026
  6. SURFACTANT [Suspect]
     Dates: start: 20031020, end: 20031021
  7. INDOMETHACIN [Suspect]
     Dates: start: 20031021, end: 20031023
  8. KAYEXALATE [Suspect]
     Dosage: 0.6 G DAILY, RC
     Route: 054
  9. KAYEXALATE [Suspect]
     Dosage: 0.65 GR DAILY RC
     Route: 054
  10. PIPERACILLIN/TAZOBACTAM [Suspect]
     Dates: start: 20031112, end: 20031116
  11. DOPAMINE HCL [Suspect]
     Dates: start: 20031110, end: 20031114
  12. ALBUMIN (HUMAN) [Suspect]
     Dates: start: 20031114, end: 20031114
  13. NYSTATIN [Suspect]
     Dates: start: 20031124, end: 20031203
  14. ALBUTEROL [Suspect]
     Dates: start: 20031201, end: 20031206
  15. CAFFEINE CITRATE [Suspect]
     Dates: start: 20031201, end: 20031206
  16. FUROSEMIDE [Suspect]
     Dates: start: 20031201, end: 20031206
  17. MORPHINE [Suspect]
     Dates: start: 20031110
  18. VANCOMYCIN [Suspect]
     Dates: start: 20031113, end: 20031115
  19. MULTI-VITAMINS [Suspect]
     Dosage: 1 ML DAILY PO
     Route: 048
     Dates: start: 20031128, end: 20031205
  20. FUROSEMIDE [Suspect]
     Dates: start: 20031201, end: 20031206
  21. VANCOMYCIN/GENTAMYCIN [Suspect]
     Dates: start: 20031201, end: 20031204
  22. FUROSEMIDE [Suspect]
     Dates: start: 20031110, end: 20031129

REACTIONS (7)
  - APNOEA [None]
  - LACTIC ACIDOSIS [None]
  - NEONATAL DISORDER [None]
  - NEONATAL RESPIRATORY DISTRESS SYNDROME [None]
  - RENAL FAILURE ACUTE [None]
  - SHOCK [None]
  - STAPHYLOCOCCAL SEPSIS [None]
